FAERS Safety Report 22825458 (Version 3)
Quarter: 2024Q1

REPORT INFORMATION
  Report Type: Spontaneous
  Country: AU (occurrence: AU)
  Receive Date: 20230816
  Receipt Date: 20240118
  Transmission Date: 20240410
  Serious: Yes (Death, Other)
  Sender: FDA-Public Use
  Company Number: AU-ORGANON-O2308AUS001412

PATIENT
  Age: 23 Year
  Sex: Male

DRUGS (1)
  1. SINGULAIR [Suspect]
     Active Substance: MONTELUKAST SODIUM
     Dosage: UNK
     Route: 065

REACTIONS (8)
  - Aggression [Fatal]
  - Completed suicide [Fatal]
  - Depression [Fatal]
  - Intentional self-injury [Fatal]
  - Restlessness [Fatal]
  - Sleep disorder [Fatal]
  - Suicidal ideation [Fatal]
  - Withdrawal syndrome [Fatal]
